FAERS Safety Report 5600347-7 (Version None)
Quarter: 2007Q4

REPORT INFORMATION
  Report Type: 
  Country: None (occurrence: None)
  Receive Date: 20071227
  Receipt Date: 20070517
  Transmission Date: 20080405
  Serious: Yes (Hospitalization)
  Sender: FDA-Public Use
  Company Number: 2006S1000293

PATIENT
  Age: 55 Year
  Sex: Female
  Weight: 112.0385 kg

DRUGS (18)
  1. SORIATANE [Suspect]
     Indication: PSORIASIS
     Dosage: 25 MG;QD;PO
     Route: 048
     Dates: start: 20060607, end: 20060831
  2. TOPROL [Concomitant]
  3. NORVASC [Concomitant]
  4. IMDUR [Concomitant]
  5. ALBUTEROL [Concomitant]
  6. ADVAIR HFA [Concomitant]
  7. CLARINEX [Concomitant]
  8. AVALIDE [Concomitant]
  9. DETROL LA [Concomitant]
  10. ATROVENT [Concomitant]
  11. PROTONIX [Concomitant]
  12. NAPROXEN [Concomitant]
  13. PROTOPIC [Concomitant]
  14. TRIAMCINOLONE (TAC) [Concomitant]
  15. DESOWEN [Concomitant]
  16. DOXYCYCLINE HYCLATE [Concomitant]
  17. UVB PHOTOTHERAPY [Concomitant]
  18. PLAVIX [Concomitant]

REACTIONS (1)
  - CEREBROVASCULAR ACCIDENT [None]
